FAERS Safety Report 20061916 (Version 1)
Quarter: 2021Q4

REPORT INFORMATION
  Report Type: Spontaneous
  Country: AU (occurrence: AU)
  Receive Date: 20211112
  Receipt Date: 20211112
  Transmission Date: 20220303
  Serious: Yes (Hospitalization, Other)
  Sender: FDA-Public Use
  Company Number: AU-Accord-244602

PATIENT
  Age: 64 Year
  Sex: Male

DRUGS (1)
  1. CISPLATIN [Suspect]
     Active Substance: CISPLATIN
     Indication: Squamous cell carcinoma
     Dosage: HIGH-DOSE CISPLATIN, IN WEEKS 1 AND 4

REACTIONS (2)
  - Anaemia [Unknown]
  - Pneumonia aspiration [Unknown]
